FAERS Safety Report 9563014 (Version 1)
Quarter: 2013Q3

REPORT INFORMATION
  Report Type: Spontaneous
  Country: IE (occurrence: IE)
  Receive Date: 20130927
  Receipt Date: 20130927
  Transmission Date: 20140515
  Serious: Yes (Other)
  Sender: FDA-Public Use
  Company Number: IE-MYLANLABS-2013S1021086

PATIENT
  Age: 65 Year
  Sex: Male

DRUGS (2)
  1. TRANEXAMIC ACID [Suspect]
     Indication: PROCOAGULANT THERAPY
     Route: 042
  2. TINZAPARIN SODIUM [Concomitant]
     Indication: THROMBOSIS PROPHYLAXIS
     Dosage: 4500IU DAILY; ONE DOSE THE EVENING PRIOR TO SURGERY, AND ONE DOSE 10 HOURS POSTOPERATIVELY
     Route: 058

REACTIONS (2)
  - Pulmonary embolism [Recovering/Resolving]
  - Cerebral infarction [Recovering/Resolving]
